FAERS Safety Report 6577396-8 (Version None)
Quarter: 2010Q1

REPORT INFORMATION
  Report Type: 
  Country: None (occurrence: None)
  Receive Date: 20100211
  Receipt Date: 20100201
  Transmission Date: 20100710
  Serious: Yes (Life-Threatening, Hospitalization)
  Sender: FDA-Public Use
  Company Number: DE-RANBAXY-2009RR-22786

PATIENT
  Age: 77 Year
  Sex: Male
  Weight: 83 kg

DRUGS (18)
  1. GABAPENTIN [Suspect]
     Indication: PERIPHERAL ARTERIAL OCCLUSIVE DISEASE
     Dosage: 300 MG, BID
     Route: 048
     Dates: start: 20090103, end: 20090130
  2. ARCOXIA [Suspect]
     Indication: PAIN IN EXTREMITY
     Dosage: 90 MG, QD
     Route: 048
     Dates: start: 20090123, end: 20090130
  3. BELOC-ZOK [Suspect]
     Indication: HYPERTENSION
     Dosage: 47.5 MG, QD
     Route: 048
     Dates: start: 19950101, end: 20090130
  4. BENAZEPRIL HYDROCHLORIDE [Suspect]
     Indication: HYPERTENSION
     Dosage: 1 DF, QD
     Route: 048
     Dates: start: 20080501, end: 20090130
  5. BENZBROMARONE AL [Suspect]
     Indication: GOUT
     Dosage: 100 MG, QD
     Route: 048
     Dates: start: 20090103, end: 20090130
  6. DIGITOXIN TAB [Suspect]
     Indication: ATRIAL FIBRILLATION
     Dosage: 0.07 MG, QD
     Route: 048
     Dates: start: 20070401, end: 20090129
  7. TORSEMIDE [Suspect]
     Indication: RENAL IMPAIRMENT
     Dosage: 20 MG, QD
     Route: 048
     Dates: start: 20090125
  8. VEROSPIRON [Suspect]
     Indication: OEDEMA PERIPHERAL
     Dosage: 25 MG, QD
     Route: 048
     Dates: start: 20081201, end: 20090129
  9. XIPAMIDE [Suspect]
     Indication: HYPERTENSION
     Dosage: 40 MG, QD
     Route: 048
     Dates: start: 20081201, end: 20090129
  10. FALITHROM [Concomitant]
     Indication: ATRIAL FIBRILLATION
     Dosage: 3 MG, QD
     Route: 048
     Dates: start: 19960101, end: 20090130
  11. LOVASTATIN [Concomitant]
     Indication: DYSLIPIDAEMIA
     Dosage: 20 MG, QD
     Route: 048
     Dates: start: 20070401, end: 20090129
  12. ALLOPURINOL [Concomitant]
  13. PHENPROCOUMON [Concomitant]
  14. TRAMADOL [Concomitant]
  15. CLOPIDOGREL [Concomitant]
  16. HEPARIN [Concomitant]
  17. RAMIPRIL [Concomitant]
  18. FLUVASTATIN [Concomitant]

REACTIONS (2)
  - DRUG INTERACTION [None]
  - RENAL FAILURE ACUTE [None]
